FAERS Safety Report 21268094 (Version 1)
Quarter: 2022Q3

REPORT INFORMATION
  Report Type: Spontaneous
  Country: US (occurrence: US)
  Receive Date: 20220829
  Receipt Date: 20220829
  Transmission Date: 20221027
  Serious: No
  Sender: FDA-Public Use
  Company Number: US-BRISTOL-MYERS SQUIBB COMPANY-2022-096876

PATIENT
  Age: 56 Year
  Sex: Female
  Weight: 64.410 kg

DRUGS (1)
  1. REVLIMID [Suspect]
     Active Substance: LENALIDOMIDE
     Indication: Plasma cell myeloma
     Dosage: FREQ: DAILY 14D, 7D OFF
     Route: 048
     Dates: start: 20220825

REACTIONS (2)
  - Flushing [Unknown]
  - Feeling cold [Unknown]
